FAERS Safety Report 23474541 (Version 1)
Quarter: 2024Q1

REPORT INFORMATION
  Report Type: Report from Study
  Country: US (occurrence: US)
  Receive Date: 20240204
  Receipt Date: 20240204
  Transmission Date: 20240410
  Serious: Yes (Other)
  Sender: FDA-Public Use
  Company Number: US-EXELIXIS-CABO-23063223

PATIENT
  Sex: Male

DRUGS (1)
  1. CABOMETYX [Suspect]
     Active Substance: CABOZANTINIB S-MALATE
     Indication: Renal cancer
     Dosage: 20 MG, QD
     Route: 048

REACTIONS (10)
  - Malignant neoplasm progression [Unknown]
  - Thyroid disorder [Unknown]
  - Full blood count abnormal [Unknown]
  - Brain fog [Unknown]
  - Fatigue [Not Recovered/Not Resolved]
  - Nausea [Recovering/Resolving]
  - Decreased appetite [Unknown]
  - Taste disorder [Unknown]
  - Drug ineffective [Unknown]
  - Somnolence [Unknown]
